FAERS Safety Report 4414890-X (Version None)
Quarter: 2004Q3

REPORT INFORMATION
  Report Type: 
  Country: None (occurrence: None)
  Receive Date: 20040804
  Receipt Date: 20040416
  Transmission Date: 20050211
  Serious: No
  Sender: FDA-Public Use
  Company Number: US-BRISTOL-MYERS SQUIBB COMPANY-12562500

PATIENT
  Age: 71 Year
  Sex: Female
  Weight: 73 kg

DRUGS (16)
  1. GLUCOPHAGE [Suspect]
     Indication: DIABETES MELLITUS NON-INSULIN-DEPENDENT
     Route: 048
     Dates: end: 20040401
  2. GLUCOVANCE [Suspect]
     Indication: DIABETES MELLITUS NON-INSULIN-DEPENDENT
     Dosage: DOSAGE = 2.5/500 MG
     Route: 048
  3. DIAZEPAM [Concomitant]
  4. WARFARIN SODIUM [Concomitant]
  5. POTASSIUM CHLORIDE [Concomitant]
  6. LIPITOR [Concomitant]
  7. LASIX [Concomitant]
  8. DIOVAN [Concomitant]
  9. FLAXSEED [Concomitant]
  10. ACIDOPHILUS [Concomitant]
  11. VITAMIN C [Concomitant]
  12. VITAMIN B COMPLEX CAP [Concomitant]
  13. CALCIUM + VITAMIN D [Concomitant]
  14. FOLIC ACID [Concomitant]
  15. VITAMIN B-12 [Concomitant]
  16. VITAMIN E [Concomitant]

REACTIONS (3)
  - CONSTIPATION [None]
  - DRUG INEFFECTIVE [None]
  - NAUSEA [None]
